FAERS Safety Report 4700391-8 (Version None)
Quarter: 2005Q2

REPORT INFORMATION
  Report Type: 
  Country: None (occurrence: None)
  Receive Date: 20050207
  Receipt Date: 20050207
  Transmission Date: 20051028
  Serious: Yes (Disabling, Other)
  Sender: FDA-Public Use
  Company Number: None

PATIENT
  Sex: Male
  Weight: 51.2565 kg

DRUGS (6)
  1. CARBAMAZEPINE [Suspect]
     Indication: CONVULSION
     Dosage: 200MG TWO BID
  2. CARBAMAZEPINE [Suspect]
     Indication: GRAND MAL CONVULSION
     Dosage: 200MG TWO BID
  3. CARBAMAZEPINE [Suspect]
     Indication: HYPOTONIA
     Dosage: 200MG TWO BID
  4. CLONAZEPAM [Suspect]
     Dosage: 0.5 ONE BID
  5. TOPAMAX [Concomitant]
  6. DEPAKOTE [Concomitant]

REACTIONS (2)
  - CONVULSION [None]
  - PHARMACEUTICAL PRODUCT COMPLAINT [None]
